FAERS Safety Report 26127636 (Version 1)
Quarter: 2025Q4

REPORT INFORMATION
  Report Type: Spontaneous
  Country: EU (occurrence: EU)
  Receive Date: 20251206
  Receipt Date: 20251206
  Transmission Date: 20260117
  Serious: Yes (Other)
  Sender: CELLTRION
  Company Number: EU-PFIZER INC-PV202500135192

PATIENT

DRUGS (9)
  1. ADALIMUMAB [Suspect]
     Active Substance: ADALIMUMAB
     Indication: Autoinflammatory disease
     Dosage: UNK, WEEKLY
  2. ADALIMUMAB [Suspect]
     Active Substance: ADALIMUMAB
  3. INFLIXIMAB [Suspect]
     Active Substance: INFLIXIMAB
     Indication: Autoinflammatory disease
     Dosage: UNK
  4. ETANERCEPT [Suspect]
     Active Substance: ETANERCEPT
     Indication: Autoinflammatory disease
     Dosage: UNK
  5. METHYLPREDNISOLONE [Suspect]
     Active Substance: METHYLPREDNISOLONE
     Indication: Autoinflammatory disease
     Dosage: HIGH DOSE
  6. METHYLPREDNISOLONE [Suspect]
     Active Substance: METHYLPREDNISOLONE
     Dosage: STEROID TAPERING
  7. METHOTREXATE [Suspect]
     Active Substance: METHOTREXATE
     Indication: Autoinflammatory disease
     Dosage: WEEKLY
  8. ANAKINRA [Concomitant]
     Active Substance: ANAKINRA
     Indication: Autoinflammatory disease
     Dosage: UNK
  9. CANAKINUMAB [Concomitant]
     Active Substance: CANAKINUMAB
     Indication: Autoinflammatory disease
     Dosage: UNK

REACTIONS (5)
  - Steroid dependence [Unknown]
  - Drug ineffective for unapproved indication [Unknown]
  - Off label use [Unknown]
  - Off label use [Unknown]
  - Intentional product use issue [Unknown]
